FAERS Safety Report 10592694 (Version 1)
Quarter: 2014Q4

REPORT INFORMATION
  Report Type: Spontaneous
  Country: DE (occurrence: None)
  Receive Date: 20141117
  Receipt Date: 20141117
  Transmission Date: 20150529
  Serious: No
  Sender: FDA-Public Use
  Company Number: DE-LHC-2014102

PATIENT
  Sex: Male

DRUGS (1)
  1. CONOXIA (OXYGEN (GAS FOR INHALATION) (VERUM) [Suspect]
     Active Substance: OXYGEN
     Indication: CHRONIC OBSTRUCTIVE PULMONARY DISEASE
     Dosage: 1 1/MIN FOR 16 HOURS
     Route: 055
     Dates: start: 20080317

REACTIONS (2)
  - Oropharyngeal pain [None]
  - Nausea [None]

NARRATIVE: CASE EVENT DATE: 20141030
